FAERS Safety Report 6108494-0 (Version None)
Quarter: 2009Q1

REPORT INFORMATION
  Report Type: 
  Country: None (occurrence: None)
  Receive Date: 20090309
  Receipt Date: 20090302
  Transmission Date: 20090719
  Serious: Yes (Hospitalization)
  Sender: FDA-Public Use
  Company Number: US-B.I. PHARMACEUTICALS,INC./RIDGEFIELD-2009-BP-02537BP

PATIENT
  Sex: Female

DRUGS (4)
  1. SPIRIVA [Suspect]
     Indication: EMPHYSEMA
     Dosage: 18MCG
     Route: 055
  2. ASPIRIN [Concomitant]
     Indication: AMNESIA
  3. PLAVIX [Concomitant]
     Indication: AMNESIA
  4. LIQUID VITAMINS [Concomitant]
     Indication: VITAMIN SUPPLEMENTATION

REACTIONS (3)
  - BLADDER CANCER [None]
  - BLOOD CHOLESTEROL INCREASED [None]
  - EYE DISORDER [None]
